FAERS Safety Report 24914501 (Version 1)
Quarter: 2025Q1

REPORT INFORMATION
  Report Type: Spontaneous
  Country: US (occurrence: US)
  Receive Date: 20250203
  Receipt Date: 20250203
  Transmission Date: 20250408
  Serious: Yes (Death, Hospitalization, Other)
  Sender: DR REDDYS
  Company Number: US-DRL-USA-USA/2025/01/001480

PATIENT
  Age: 43 Year
  Sex: Female

DRUGS (8)
  1. PHENYLEPHRINE [Suspect]
     Active Substance: PHENYLEPHRINE
     Indication: Septic shock
  2. VASOPRESSIN [Suspect]
     Active Substance: VASOPRESSIN
     Indication: Septic shock
  3. NOREPINEPHRINE [Suspect]
     Active Substance: NOREPINEPHRINE
     Indication: Septic shock
  4. VANCOMYCIN [Suspect]
     Active Substance: VANCOMYCIN
     Indication: Septic shock
  5. MEROPENEM [Suspect]
     Active Substance: MEROPENEM
     Indication: Septic shock
  6. MICAFUNGIN [Suspect]
     Active Substance: MICAFUNGIN SODIUM
     Indication: Septic shock
  7. OCTREOTIDE [Suspect]
     Active Substance: OCTREOTIDE
     Indication: Haematochezia
  8. PROTONIX [Suspect]
     Active Substance: PANTOPRAZOLE SODIUM
     Indication: Haematochezia

REACTIONS (4)
  - Acidosis [Fatal]
  - Condition aggravated [Fatal]
  - Renal tubular necrosis [Fatal]
  - Drug ineffective [Fatal]
